FAERS Safety Report 15956229 (Version 2)
Quarter: 2019Q1

REPORT INFORMATION
  Report Type: Report from Study
  Country: IE (occurrence: IE)
  Receive Date: 20190213
  Receipt Date: 20190218
  Transmission Date: 20190417
  Serious: Yes (Other)
  Sender: FDA-Public Use
  Company Number: IE-JNJFOC-20181120979

PATIENT
  Age: 68 Year
  Sex: Female

DRUGS (14)
  1. BETAHISTINE [Concomitant]
     Active Substance: BETAHISTINE
     Route: 050
  2. CALCICHEW [Concomitant]
     Active Substance: CALCIUM CARBONATE
     Route: 050
  3. STELARA [Suspect]
     Active Substance: USTEKINUMAB
     Indication: TEMPORAL ARTERITIS
     Route: 058
     Dates: start: 20180125
  4. FOLIC ACID. [Concomitant]
     Active Substance: FOLIC ACID
     Route: 050
  5. MONTELUKAST [Concomitant]
     Active Substance: MONTELUKAST SODIUM
     Dosage: NIGHT
     Route: 050
  6. STELARA [Suspect]
     Active Substance: USTEKINUMAB
     Indication: TEMPORAL ARTERITIS
     Route: 058
  7. ASPIRIN. [Concomitant]
     Active Substance: ASPIRIN
     Route: 050
  8. BISOPROLOL [Concomitant]
     Active Substance: BISOPROLOL
     Route: 050
  9. AMLODIPINE [Concomitant]
     Active Substance: AMLODIPINE BESYLATE
     Route: 050
  10. LYRICA [Concomitant]
     Active Substance: PREGABALIN
     Route: 050
  11. CANDESARTAN. [Concomitant]
     Active Substance: CANDESARTAN
     Route: 050
  12. DELTACORTRIL [Concomitant]
     Active Substance: PREDNISOLONE
     Route: 050
  13. METHOTREXATE. [Concomitant]
     Active Substance: METHOTREXATE
     Route: 050
  14. NEXIUM [Concomitant]
     Active Substance: ESOMEPRAZOLE MAGNESIUM
     Route: 050

REACTIONS (5)
  - Fungal skin infection [Not Recovered/Not Resolved]
  - Off label use [Unknown]
  - Oral candidiasis [Recovered/Resolved]
  - Lower respiratory tract infection [Unknown]
  - Product use in unapproved indication [Unknown]

NARRATIVE: CASE EVENT DATE: 2018
